FAERS Safety Report 5267045-3 (Version None)
Quarter: 2007Q1

REPORT INFORMATION
  Report Type: 
  Country: None (occurrence: None)
  Receive Date: 20070316
  Receipt Date: 20070306
  Transmission Date: 20070707
  Serious: Yes (Hospitalization, Other)
  Sender: FDA-Public Use
  Company Number: DE-JNJFOC-20070204299

PATIENT
  Sex: Female
  Weight: 24 kg

DRUGS (1)
  1. CONCERTA [Suspect]
     Indication: ATTENTION DEFICIT/HYPERACTIVITY DISORDER
     Dosage: INITIATED THREE MONTH AGO
     Route: 048

REACTIONS (2)
  - PUPILS UNEQUAL [None]
  - SYNCOPE [None]
